FAERS Safety Report 9055473 (Version 1)
Quarter: 2013Q1

REPORT INFORMATION
  Report Type: Spontaneous
  Country: JP (occurrence: JP)
  Receive Date: 20130206
  Receipt Date: 20130206
  Transmission Date: 20140127
  Serious: Yes (Other)
  Sender: FDA-Public Use
  Company Number: JP-ASTRAZENECA-2013SE07588

PATIENT
  Age: 75 Year
  Sex: Female

DRUGS (2)
  1. OMEPRAL [Suspect]
     Dosage: DOSE UNKNOWN
     Route: 048
  2. DIOVAN [Concomitant]

REACTIONS (1)
  - Rhabdomyolysis [Unknown]
